FAERS Safety Report 7273697-9 (Version None)
Quarter: 2011Q1

REPORT INFORMATION
  Report Type: 
  Country: None (occurrence: None)
  Receive Date: 20110203
  Receipt Date: 20110125
  Transmission Date: 20110831
  Serious: Yes (Hospitalization)
  Sender: FDA-Public Use
  Company Number: US-CELGENEUS-163-21880-11010500

PATIENT
  Sex: Female

DRUGS (20)
  1. GLUCOVANCE [Concomitant]
     Route: 065
  2. ALEVE [Concomitant]
     Route: 065
  3. VOLTAREN [Concomitant]
     Route: 065
  4. DARVOCET-N 100 [Concomitant]
     Route: 065
  5. KEFLEX [Concomitant]
     Route: 065
  6. PRILOSEC [Concomitant]
     Route: 065
  7. ATENOLOL [Concomitant]
     Route: 065
  8. VICODIN [Concomitant]
     Route: 065
  9. IMODIUM MULTI-SYMPTOM RELIEF [Concomitant]
     Route: 065
  10. INSULIN [Concomitant]
     Route: 065
  11. DETROL [Concomitant]
     Route: 065
  12. PROTONIX [Concomitant]
     Route: 065
  13. BENADRYL [Concomitant]
     Route: 065
  14. REVLIMID [Suspect]
     Route: 048
     Dates: start: 20110101
  15. MULTI-VITAMINS [Concomitant]
     Route: 065
  16. LOMOTIL [Concomitant]
     Route: 065
  17. NORVASC [Concomitant]
     Route: 065
  18. REVLIMID [Suspect]
     Indication: MYELODYSPLASTIC SYNDROME
     Route: 048
     Dates: start: 20101015
  19. BUMEX [Concomitant]
     Route: 065
  20. VALIUM [Concomitant]
     Route: 065

REACTIONS (1)
  - INTERVERTEBRAL DISC DEGENERATION [None]
